FAERS Safety Report 4358156-5 (Version None)
Quarter: 2004Q2

REPORT INFORMATION
  Report Type: 
  Country: None (occurrence: None)
  Receive Date: 20040510
  Receipt Date: 20040419
  Transmission Date: 20050107
  Serious: Yes (Death, Life-Threatening, Hospitalization)
  Sender: FDA-Public Use
  Company Number: F01200400286

PATIENT
  Age: 63 Year
  Sex: Female

DRUGS (24)
  1. OXALIPLATIN-SOLUTION-233 MG [Suspect]
     Indication: COLON CANCER
     Dosage: 233 MG Q3W, INTRAVENOUS NOS; 2 HOURS-TIME TO ONSET
     Route: 042
     Dates: start: 20040120, end: 20040120
  2. CAPECITABINE-TABLET-1800 MG [Suspect]
     Dosage: 1800 MG TWICE A DAY PER ORAL FROM D1 TO D15 ORAL; 2 WEEKS-TIME TO ONSET
     Route: 048
     Dates: start: 20040120, end: 20040203
  3. WELLBUTRIN [Concomitant]
  4. PROZAC [Concomitant]
  5. LEVOTHYROID (LEVOTHYROXINE SODIUM) [Concomitant]
  6. CALTRATE (CALCIUM CARBONATE) [Concomitant]
  7. COUMADIN [Concomitant]
  8. ACIPHEX [Concomitant]
  9. PROTONIX [Concomitant]
  10. ACETAMINOPHEN [Concomitant]
  11. TEMAZEPAM [Concomitant]
  12. CIPRO [Concomitant]
  13. ZOFRAN [Concomitant]
  14. AMBIEN [Concomitant]
  15. HALDOL [Concomitant]
  16. ATIVAN [Concomitant]
  17. RISPERDAL [Concomitant]
  18. SANDOSTATIN [Concomitant]
  19. VITAMIN K TAB [Concomitant]
  20. HEPARIN SODIUM [Concomitant]
  21. MULTI-VITAMINS [Concomitant]
  22. NORMAL SALINE WITH POTASSIUM CHLORIDE [Concomitant]
  23. MAALOX (ALUMINIUM HYDROXIDE+CALCIM CARBONATE+MAGNESIUM HYDROXIDE) [Concomitant]
  24. ETOMIDATE [Concomitant]

REACTIONS (19)
  - ACIDOSIS [None]
  - ATELECTASIS [None]
  - BRONCHOPNEUMONIA [None]
  - CANDIDIASIS [None]
  - CIRCULATORY COLLAPSE [None]
  - DEHYDRATION [None]
  - DIARRHOEA [None]
  - DYSPHAGIA [None]
  - ENCEPHALOPATHY [None]
  - HYDRONEPHROSIS [None]
  - HYPOTENSION [None]
  - ILEUS [None]
  - INTESTINAL OBSTRUCTION [None]
  - MUCOSAL INFLAMMATION [None]
  - NAUSEA [None]
  - OXYGEN SATURATION DECREASED [None]
  - RENAL FAILURE [None]
  - RESPIRATORY DISTRESS [None]
  - VOMITING [None]
